FAERS Safety Report 8051001-6 (Version None)
Quarter: 2012Q1

REPORT INFORMATION
  Report Type: 
  Country: None (occurrence: None)
  Receive Date: 20120117
  Receipt Date: 20120111
  Transmission Date: 20120608
  Serious: Yes (Hospitalization)
  Sender: FDA-Public Use
  Company Number: PHHO2011US15800

PATIENT
  Sex: Female
  Weight: 44 kg

DRUGS (3)
  1. CERTICAN [Suspect]
     Indication: RENAL TRANSPLANT
     Dosage: 0.75 MG, BID
     Dates: start: 20101121
  2. TACROLIMUS [Suspect]
     Indication: RENAL TRANSPLANT
     Dosage: 7 MG, UNK
     Dates: start: 20101121
  3. CERTICAN [Suspect]
     Dosage: 1.5 MG, BID
     Dates: start: 20101201

REACTIONS (4)
  - DEHYDRATION [None]
  - GASTROENTERITIS [None]
  - PYREXIA [None]
  - CONCOMITANT DISEASE PROGRESSION [None]
